FAERS Safety Report 16188361 (Version 1)
Quarter: 2019Q2

REPORT INFORMATION
  Report Type: Spontaneous
  Country: FR (occurrence: FR)
  Receive Date: 20190412
  Receipt Date: 20190412
  Transmission Date: 20190711
  Serious: Yes (Other)
  Sender: FDA-Public Use
  Company Number: FR-GLAXOSMITHKLINE-FR2019064689

PATIENT
  Age: 86 Year
  Sex: Female

DRUGS (2)
  1. WELLVONE [Suspect]
     Active Substance: ATOVAQUONE
     Dosage: 1500 MG, QD
     Route: 048
     Dates: start: 20190228, end: 20190307
  2. WELLVONE [Suspect]
     Active Substance: ATOVAQUONE
     Indication: PROPHYLAXIS
     Dosage: 1500 MG, QD
     Route: 048
     Dates: start: 20190222, end: 20190227

REACTIONS (3)
  - Condition aggravated [Recovered/Resolved]
  - Neutropenia [Recovered/Resolved]
  - Thrombocytopenia [Recovered/Resolved]

NARRATIVE: CASE EVENT DATE: 20190226
